FAERS Safety Report 4548171-0 (Version None)
Quarter: 2005Q1

REPORT INFORMATION
  Report Type: 
  Country: None (occurrence: None)
  Receive Date: 20050110
  Receipt Date: 20041231
  Transmission Date: 20050727
  Serious: Yes (Hospitalization)
  Sender: FDA-Public Use
  Company Number: 200510013FR

PATIENT
  Age: 90 Year
  Sex: Female

DRUGS (5)
  1. LASILIX 40 MG [Suspect]
     Indication: ESSENTIAL HYPERTENSION
     Route: 048
     Dates: start: 20030101, end: 20040424
  2. DIFFU K [Suspect]
     Indication: HYPOKALAEMIA
     Route: 048
     Dates: start: 20030101, end: 20040424
  3. KARDEGIC [Suspect]
     Route: 048
     Dates: start: 20030101, end: 20040424
  4. MOPRAL [Suspect]
     Indication: GASTRITIS
     Route: 048
     Dates: start: 20030101, end: 20040424
  5. ARICEPT [Suspect]
     Indication: DEMENTIA ALZHEIMER'S TYPE
     Route: 048
     Dates: start: 20030101, end: 20040424

REACTIONS (2)
  - ACUTE GENERALISED EXANTHEMATOUS PUSTULOSIS [None]
  - LUNG INFECTION [None]
